FAERS Safety Report 13973116 (Version 1)
Quarter: 2017Q3

REPORT INFORMATION
  Report Type: Spontaneous
  Country: CA (occurrence: CA)
  Receive Date: 20170915
  Receipt Date: 20170915
  Transmission Date: 20171128
  Serious: Yes (Other)
  Sender: FDA-Public Use
  Company Number: CA-JNJFOC-20170621347

PATIENT

DRUGS (3)
  1. USTEKINUMAB [Suspect]
     Active Substance: USTEKINUMAB
     Indication: CROHN^S DISEASE
     Dosage: INDUCTION: WEEK 0, 1, AND 2.
     Route: 058
  2. METHOTREXATE. [Concomitant]
     Active Substance: METHOTREXATE
     Route: 065
  3. USTEKINUMAB [Suspect]
     Active Substance: USTEKINUMAB
     Indication: CROHN^S DISEASE
     Dosage: MAINTENANCE: EVERY 4 OR EVERY 8 WEEKS
     Route: 058

REACTIONS (11)
  - Infection [Unknown]
  - Dry skin [Unknown]
  - Headache [Unknown]
  - Neoplasm malignant [Unknown]
  - Drug level decreased [Unknown]
  - Fatigue [Unknown]
  - Pruritus [Unknown]
  - Arthralgia [Unknown]
  - Myalgia [Unknown]
  - Colon cancer [Unknown]
  - Nephrolithiasis [Unknown]
